FAERS Safety Report 4883281-X (Version None)
Quarter: 2006Q1

REPORT INFORMATION
  Report Type: 
  Country: None (occurrence: None)
  Receive Date: 20060117
  Receipt Date: 20060117
  Transmission Date: 20060701
  Serious: No
  Sender: FDA-Public Use
  Company Number: None

PATIENT
  Age: 51 Year
  Sex: Male
  Weight: 111 kg

DRUGS (1)
  1. VANCOMYCIN [Suspect]
     Indication: WOUND INFECTION STAPHYLOCOCCAL
     Dosage: 1000MG Q12H IV DRIP
     Route: 041
     Dates: start: 20051229, end: 20060109

REACTIONS (3)
  - MYALGIA [None]
  - RED MAN SYNDROME [None]
  - TACHYCARDIA [None]
